FAERS Safety Report 10044551 (Version 3)
Quarter: 2014Q2

REPORT INFORMATION
  Report Type: Spontaneous
  Country: US (occurrence: US)
  Receive Date: 20140328
  Receipt Date: 20140512
  Transmission Date: 20141212
  Serious: Yes (Other)
  Sender: FDA-Public Use
  Company Number: US-PFIZER INC-2014087702

PATIENT
  Age: 47 Year
  Sex: Female

DRUGS (1)
  1. LYRICA [Suspect]
     Dosage: UNK, 3X/DAY
     Dates: end: 201306

REACTIONS (3)
  - Cerebrovascular accident [Unknown]
  - Cardiac arrest [Recovered/Resolved]
  - Nervous system disorder [Unknown]
